FAERS Safety Report 6720162-0 (Version None)
Quarter: 2010Q2

REPORT INFORMATION
  Report Type: 
  Country: None (occurrence: None)
  Receive Date: 20100507
  Receipt Date: 20100422
  Transmission Date: 20101027
  Serious: Yes (Hospitalization, Other)
  Sender: FDA-Public Use
  Company Number: A-CH2007-17660

PATIENT
  Sex: Male

DRUGS (1)
  1. TRACLEER [Suspect]
     Indication: DRUG EXPOSURE DURING PREGNANCY
     Dosage: TRANSPLACENTAL
     Route: 064

REACTIONS (5)
  - CAESAREAN SECTION [None]
  - FOETAL DISTRESS SYNDROME [None]
  - MATERNAL DRUGS AFFECTING FOETUS [None]
  - NORMAL NEWBORN [None]
  - PREMATURE BABY [None]
